FAERS Safety Report 17105918 (Version 1)
Quarter: 2019Q4

REPORT INFORMATION
  Report Type: Report from Study
  Country: EG (occurrence: EG)
  Receive Date: 20191203
  Receipt Date: 20191203
  Transmission Date: 20200122
  Serious: Yes (Other)
  Sender: FDA-Public Use
  Company Number: EG-KADMON PHARMACEUTICALS, LLC-KAD201912-000808

PATIENT

DRUGS (3)
  1. SOFOSBUVIR [Suspect]
     Active Substance: SOFOSBUVIR
     Indication: CHRONIC HEPATITIS C
     Dosage: 400 MG
  2. OMBITASVIR/PARITAPREVIR/RITONAVIR [Suspect]
     Active Substance: OMBITASVIR\PARITAPREVIR\RITONAVIR
     Indication: CHRONIC HEPATITIS C
     Dosage: 2 TABLETS (12.5/75/50 MG)
  3. RIBAVIRIN. [Suspect]
     Active Substance: RIBAVIRIN
     Indication: CHRONIC HEPATITIS C

REACTIONS (2)
  - Hepatic failure [Unknown]
  - Haematemesis [Unknown]
